FAERS Safety Report 9146688 (Version 3)
Quarter: 2013Q2

REPORT INFORMATION
  Report Type: Spontaneous
  Country: US (occurrence: US)
  Receive Date: 20130307
  Receipt Date: 20130529
  Transmission Date: 20140414
  Serious: No
  Sender: FDA-Public Use
  Company Number: US-PFIZER INC-2013074945

PATIENT
  Sex: Male
  Weight: 88.44 kg

DRUGS (3)
  1. VIAGRA [Suspect]
     Indication: DYSPNOEA
     Dosage: UNK, AS NEEDED
  2. VIAGRA [Suspect]
     Indication: TYPE 2 DIABETES MELLITUS
  3. ADVAIR [Concomitant]
     Indication: DYSPNOEA
     Dosage: UNK, 2X/DAY

REACTIONS (4)
  - Pre-existing condition improved [Unknown]
  - Therapeutic response unexpected [Unknown]
  - Off label use [Unknown]
  - Drug prescribing error [Unknown]
